FAERS Safety Report 12392514 (Version 1)
Quarter: 2016Q2

REPORT INFORMATION
  Report Type: Report from Study
  Country: BR (occurrence: BR)
  Receive Date: 20160523
  Receipt Date: 20160523
  Transmission Date: 20160815
  Serious: Yes (Other)
  Sender: FDA-Public Use
  Company Number: PHHY2014BR162994

PATIENT
  Age: 57 Year
  Sex: Female
  Weight: 76 kg

DRUGS (7)
  1. ENALAPRIL [Concomitant]
     Active Substance: ENALAPRIL
     Indication: HYPERTENSION
     Dosage: 10 MG, QD
     Route: 065
     Dates: start: 2003
  2. GLIFAGE [Concomitant]
     Active Substance: METFORMIN HYDROCHLORIDE
     Indication: GLUCOSE TOLERANCE IMPAIRED
     Dosage: 500 MG, BID
     Route: 065
  3. SANDOSTATIN LAR DEPOT [Suspect]
     Active Substance: OCTREOTIDE ACETATE
     Indication: ACROMEGALY
     Dosage: 20 MG, QMO
     Route: 030
     Dates: start: 2005
  4. SANDOSTATIN LAR DEPOT [Suspect]
     Active Substance: OCTREOTIDE ACETATE
     Dosage: 1 DF (ONE INJECTION), EVERY 40 DAYS
     Route: 030
     Dates: start: 2015
  5. SANDOSTATIN LAR DEPOT [Suspect]
     Active Substance: OCTREOTIDE ACETATE
     Dosage: 20 MG, EVERY SIX WEEKS
     Route: 030
  6. HYDROCHLOROTHIAZIDE. [Concomitant]
     Active Substance: HYDROCHLOROTHIAZIDE
     Indication: URINE ABNORMALITY
     Dosage: UNK UNK, QD
     Route: 065
     Dates: start: 2003
  7. SIMVASTATIN. [Concomitant]
     Active Substance: SIMVASTATIN
     Indication: BLOOD CHOLESTEROL ABNORMAL
     Dosage: 1 DF (ONE TABLET), QHS
     Route: 065

REACTIONS (19)
  - Chikungunya virus infection [Unknown]
  - Abnormal faeces [Recovering/Resolving]
  - Arthralgia [Unknown]
  - Abdominal pain [Recovering/Resolving]
  - Hypokinesia [Not Recovered/Not Resolved]
  - Needle issue [Unknown]
  - Wrong technique in product usage process [Unknown]
  - Dysstasia [Unknown]
  - Peripheral swelling [Unknown]
  - Pain in extremity [Not Recovered/Not Resolved]
  - Cholelithiasis [Recovered/Resolved]
  - Concomitant disease aggravated [Not Recovered/Not Resolved]
  - Headache [Unknown]
  - Bone pain [Unknown]
  - Faeces discoloured [Recovering/Resolving]
  - Inappropriate schedule of drug administration [Unknown]
  - Faeces soft [Recovering/Resolving]
  - Pain [Unknown]
  - Fatigue [Unknown]

NARRATIVE: CASE EVENT DATE: 20141211
